FAERS Safety Report 8033914-4 (Version None)
Quarter: 2012Q1

REPORT INFORMATION
  Report Type: 
  Country: None (occurrence: None)
  Receive Date: 20120110
  Receipt Date: 20120102
  Transmission Date: 20120608
  Serious: Yes (Death)
  Sender: FDA-Public Use
  Company Number: US-BAYER-2012-001865

PATIENT
  Age: 35 Year
  Sex: Female

DRUGS (5)
  1. PROPOXYPHENE HYDROCHLORIDE [Suspect]
  2. DIPHENHYDRAMINE HCL [Suspect]
  3. ZOLPIDEM [Suspect]
  4. ACETAMINOPHEN AND HYDROCODONE BITARTRATE [Suspect]
  5. CITALOPRAM [Suspect]

REACTIONS (1)
  - TOXICITY TO VARIOUS AGENTS [None]
